FAERS Safety Report 6848816-6 (Version None)
Quarter: 2010Q3

REPORT INFORMATION
  Report Type: 
  Country: None (occurrence: None)
  Receive Date: 20100716
  Receipt Date: 20070909
  Transmission Date: 20110219
  Serious: No
  Sender: FDA-Public Use
  Company Number: US-PFIZER INC-2007076029

PATIENT
  Sex: Female
  Weight: 106.8 kg

DRUGS (4)
  1. CHANTIX [Suspect]
     Indication: SMOKING CESSATION THERAPY
     Route: 048
     Dates: start: 20070831
  2. XANAX [Concomitant]
     Indication: ANXIETY
     Route: 048
  3. ATENOLOL [Concomitant]
     Indication: HYPERTENSION
     Route: 048
  4. METHADONE HCL [Concomitant]
     Indication: BACK PAIN
     Route: 048

REACTIONS (1)
  - VOMITING [None]
